FAERS Safety Report 10260545 (Version 1)
Quarter: 2014Q2

REPORT INFORMATION
  Report Type: Spontaneous
  Country: AU (occurrence: AU)
  Receive Date: 20140626
  Receipt Date: 20140626
  Transmission Date: 20141212
  Serious: Yes (Hospitalization)
  Sender: FDA-Public Use
  Company Number: 2014SP003475

PATIENT
  Age: 82 Year
  Sex: Male

DRUGS (6)
  1. RIFAMPICIN [Suspect]
     Indication: TUBERCULOSIS
  2. WARFARIN [Suspect]
     Indication: ATRIAL FIBRILLATION
  3. WARFARIN [Suspect]
     Indication: ATRIAL FIBRILLATION
  4. ISONIAZID [Concomitant]
     Indication: TUBERCULOSIS
  5. PYRAZINAMIDE [Concomitant]
     Indication: TUBERCULOSIS
  6. ETHAMBUTOL [Concomitant]
     Indication: TUBERCULOSIS

REACTIONS (11)
  - Drug interaction [Unknown]
  - Anticoagulation drug level above therapeutic [Unknown]
  - International normalised ratio increased [Recovering/Resolving]
  - Prothrombin time prolonged [Recovering/Resolving]
  - Activated partial thromboplastin time prolonged [Recovering/Resolving]
  - Haematoma [Unknown]
  - Contusion [Unknown]
  - Anaemia [Recovering/Resolving]
  - Dizziness [Unknown]
  - Lethargy [Unknown]
  - Abdominal pain [Unknown]
